FAERS Safety Report 5681635-5 (Version None)
Quarter: 2008Q1

REPORT INFORMATION
  Report Type: 
  Country: None (occurrence: None)
  Receive Date: 20080326
  Receipt Date: 20070226
  Transmission Date: 20080703
  Serious: No
  Sender: FDA-Public Use
  Company Number: US-BAYER-US-2007-007083

PATIENT
  Age: -1 Year
  Sex: Male

DRUGS (1)
  1. MIRENA [Suspect]
     Route: 015

REACTIONS (1)
  - GENITAL PAIN [None]
